FAERS Safety Report 5074006-6 (Version None)
Quarter: 2006Q3

REPORT INFORMATION
  Report Type: 
  Country: None (occurrence: None)
  Receive Date: 20060808
  Receipt Date: 20060426
  Transmission Date: 20061208
  Serious: No
  Sender: FDA-Public Use
  Company Number: US-AMGEN-KDL177950

PATIENT
  Sex: Male

DRUGS (7)
  1. PROCRIT [Suspect]
     Indication: RENAL FAILURE CHRONIC
     Route: 065
     Dates: start: 20050914, end: 20060123
  2. TOPRAL [Concomitant]
  3. LASIX [Concomitant]
  4. ENALAPRIL MALEATE [Concomitant]
  5. GLYBURIDE [Concomitant]
  6. AVANDIA [Concomitant]
  7. ZOCOR [Concomitant]

REACTIONS (1)
  - PRURITUS [None]
